FAERS Safety Report 21015958 (Version 1)
Quarter: 2022Q2

REPORT INFORMATION
  Report Type: Report from Study
  Country: US (occurrence: US)
  Receive Date: 20220628
  Receipt Date: 20220628
  Transmission Date: 20220720
  Serious: No
  Sender: FDA-Public Use
  Company Number: US-Ipsen Biopharmaceuticals, Inc.-2022-18060

PATIENT
  Age: 27 Year
  Sex: Female

DRUGS (1)
  1. SOMATULINE DEPOT [Suspect]
     Active Substance: LANREOTIDE ACETATE
     Indication: Acromegaly
     Dosage: BUTTOCKS
     Route: 058
     Dates: start: 2016

REACTIONS (3)
  - Nausea [Unknown]
  - Vomiting [Unknown]
  - Therapeutic response shortened [Unknown]
